FAERS Safety Report 8760092 (Version 2)
Quarter: 2012Q4

REPORT INFORMATION
  Report Type: 
  Country: AU (occurrence: AU)
  Receive Date: 20120829
  Receipt Date: 20120907
  Transmission Date: 20130627
  Serious: Yes (Other)
  Sender: FDA-Public Use
  Company Number: AU-009507513-2012SP025279

PATIENT

DRUGS (1)
  1. CELESTONE CHRONODOSE [Suspect]
     Indication: TENDONITIS
     Dosage: Route:Peritendinous
     Dates: start: 20110915

REACTIONS (2)
  - Injection site necrosis [Unknown]
  - Injection site pain [Unknown]
